FAERS Safety Report 8713893 (Version 2)
Quarter: 2012Q4

REPORT INFORMATION
  Report Type: 
  Country: US (occurrence: US)
  Receive Date: 20120808
  Receipt Date: 20120830
  Transmission Date: 20130627
  Serious: Yes (Hospitalization, Other)
  Sender: FDA-Public Use
  Company Number: US-PFIZER INC-2012190910

PATIENT
  Age: 51 Year
  Sex: Female
  Weight: 81.63 kg

DRUGS (5)
  1. LIPITOR [Suspect]
     Indication: BLOOD CHOLESTEROL INCREASED
     Dosage: 10 mg, daily
  2. METFORMIN [Concomitant]
     Indication: DIABETES MELLITUS
     Dosage: 500 mg, 3x/day
  3. LANTUS [Concomitant]
     Indication: DIABETES MELLITUS
     Dosage: 32 IU,daily
  4. LISINOPRIL [Concomitant]
     Indication: HYPERTENSION
     Dosage: 10 mg, daily
  5. EFFIENT [Concomitant]
     Indication: CARDIAC DISORDER
     Dosage: 10 mg, daily

REACTIONS (3)
  - Angina pectoris [Not Recovered/Not Resolved]
  - Coronary artery occlusion [Recovered/Resolved]
  - Amnesia [Unknown]
